FAERS Safety Report 11203808 (Version 1)
Quarter: 2015Q2

REPORT INFORMATION
  Report Type: Spontaneous
  Country: US (occurrence: US)
  Receive Date: 20150619
  Receipt Date: 20150619
  Transmission Date: 20150821
  Serious: Yes (Hospitalization, Disabling, Other)
  Sender: FDA-Public Use
  Company Number: US-009507513-1203USA02928

PATIENT
  Sex: Female

DRUGS (4)
  1. FOSAMAX [Suspect]
     Active Substance: ALENDRONATE SODIUM
     Dosage: 70 MG, UNK
     Route: 048
     Dates: start: 20010501, end: 20080126
  2. FOSAMAX [Suspect]
     Active Substance: ALENDRONATE SODIUM
     Indication: BONE DENSITY DECREASED
     Dosage: 5 MG, UNK
     Route: 048
     Dates: start: 20000602, end: 20001120
  3. FOSAMAX [Suspect]
     Active Substance: ALENDRONATE SODIUM
     Route: 048
  4. ALENDRONATE SODIUM. [Suspect]
     Active Substance: ALENDRONATE SODIUM
     Indication: BONE DENSITY DECREASED
     Dosage: 70 MG, UNK
     Route: 048
     Dates: start: 20080419, end: 20081129

REACTIONS (10)
  - Pelvic fracture [Unknown]
  - Umbilical hernia [Unknown]
  - Open reduction of fracture [Unknown]
  - Pneumonia [Unknown]
  - Diabetes mellitus [Unknown]
  - Femur fracture [Unknown]
  - Bone disorder [Unknown]
  - Lower limb fracture [Unknown]
  - Nephrolithiasis [Unknown]
  - Ligament sprain [Unknown]

NARRATIVE: CASE EVENT DATE: 200007
